FAERS Safety Report 5995773-0 (Version None)
Quarter: 2008Q4

REPORT INFORMATION
  Report Type: 
  Country: None (occurrence: None)
  Receive Date: 20081212
  Receipt Date: 20080930
  Transmission Date: 20090506
  Serious: No
  Sender: FDA-Public Use
  Company Number: US-ABBOTT-08P-163-0479567-00

PATIENT
  Sex: Female
  Weight: 86.714 kg

DRUGS (8)
  1. HUMIRA [Suspect]
     Indication: CROHN'S DISEASE
     Route: 058
     Dates: start: 20080917, end: 20080917
  2. HUMIRA [Suspect]
     Route: 058
     Dates: start: 20080903, end: 20080903
  3. ATENOLOL [Concomitant]
     Indication: DRUG USE FOR UNKNOWN INDICATION
  4. PAROXETINE HCL [Concomitant]
     Indication: DRUG USE FOR UNKNOWN INDICATION
  5. MESALAMINE [Concomitant]
     Indication: DRUG USE FOR UNKNOWN INDICATION
  6. LOMOTIL [Concomitant]
     Indication: DRUG USE FOR UNKNOWN INDICATION
  7. AMITRIPTYLINE HCL [Concomitant]
     Indication: DRUG USE FOR UNKNOWN INDICATION
  8. CYCLOBENZAPRINE HCL [Concomitant]
     Indication: DRUG USE FOR UNKNOWN INDICATION

REACTIONS (5)
  - DYSGEUSIA [None]
  - DYSPNOEA [None]
  - MUSCULOSKELETAL DISCOMFORT [None]
  - SWOLLEN TONGUE [None]
  - URTICARIA [None]
